FAERS Safety Report 4610992-3 (Version None)
Quarter: 2005Q1

REPORT INFORMATION
  Report Type: 
  Country: None (occurrence: None)
  Receive Date: 20050316
  Receipt Date: 20050316
  Transmission Date: 20050727
  Serious: Yes (Hospitalization)
  Sender: FDA-Public Use
  Company Number: None

PATIENT
  Age: 71 Year
  Sex: Male
  Weight: 93.9 kg

DRUGS (22)
  1. PHENYTOIN [Suspect]
     Indication: CONVULSION
     Dosage: 600MG, 200MG Q8, ORAL
     Route: 048
  2. TRAMADOL HCL [Concomitant]
  3. BISACODYL SUPP [Concomitant]
  4. SPIRONOLACTONE [Concomitant]
  5. SORBITOL [Concomitant]
  6. OMEPRAZOLE [Concomitant]
  7. METOPROLOL TARTRATE [Concomitant]
  8. LORAZEPAM [Concomitant]
  9. FUROSEMIDE [Concomitant]
  10. DOCUSATE [Concomitant]
  11. DEXTROSE [Concomitant]
  12. CALCIUM CARBONATE [Concomitant]
  13. INSULIN REG HUMAN NOVOLIN R [Concomitant]
  14. IPRATROPIUM BROMIDE [Concomitant]
  15. ALBUTEROL NEB SOLN. IHAL [Concomitant]
  16. SULFAMETH/ TRIMETHOPRIM [Concomitant]
  17. ACETYLCYSTEINE [Concomitant]
  18. ACETYLCYSTEINE [Concomitant]
  19. FENTANYL UD PATCH [Concomitant]
  20. OXYCODONE AND ACETAMINOPHEN [Concomitant]
  21. DILANTIN [Concomitant]
  22. ALOH/MGOH/SIMTH XTRA STR [Concomitant]

REACTIONS (1)
  - DRUG LEVEL ABOVE THERAPEUTIC [None]
